FAERS Safety Report 14923756 (Version 1)
Quarter: 2018Q2

REPORT INFORMATION
  Report Type: Spontaneous
  Country: US (occurrence: US)
  Receive Date: 20180503
  Receipt Date: 20180503
  Transmission Date: 20180711
  Serious: Yes (Disabling)
  Sender: FDA-Public Use
  Company Number: None

PATIENT
  Age: 54 Year
  Sex: Male
  Weight: 94.5 kg

DRUGS (8)
  1. TESTOSTERONE TOPICAL SOLUTION 30 MG PER ACTUATION [Suspect]
     Active Substance: TESTOSTERONE
     Indication: BLOOD TESTOSTERONE DECREASED
     Dosage: ?          QUANTITY:1 PUMPS;?
     Route: 061
     Dates: start: 20180415, end: 20180424
  2. TESTOSTERONE TOPICAL SOLUTION 30 MG PER ACTUATION [Suspect]
     Active Substance: TESTOSTERONE
     Indication: HYPOGONADISM
     Dosage: ?          QUANTITY:1 PUMPS;?
     Route: 061
     Dates: start: 20180415, end: 20180424
  3. NADOLOL. [Concomitant]
     Active Substance: NADOLOL
  4. ZOLPIDEM [Concomitant]
     Active Substance: ZOLPIDEM\ZOLPIDEM TARTRATE
  5. CLONAZEPAM. [Concomitant]
     Active Substance: CLONAZEPAM
  6. MULTIVITAMIN [Concomitant]
     Active Substance: VITAMINS
  7. LEVOTHYROXINE. [Concomitant]
     Active Substance: LEVOTHYROXINE
  8. MIRTRAZAPINE [Concomitant]

REACTIONS (12)
  - Drug ineffective [None]
  - Dysuria [None]
  - Insomnia [None]
  - Application site irritation [None]
  - Hot flush [None]
  - Application site pain [None]
  - Headache [None]
  - Therapy change [None]
  - Application site erythema [None]
  - Nausea [None]
  - Diarrhoea [None]
  - Quality of life decreased [None]

NARRATIVE: CASE EVENT DATE: 20180415
